FAERS Safety Report 15170823 (Version 1)
Quarter: 2018Q4

REPORT INFORMATION
  Report Type: Spontaneous
  Country: GB (occurrence: GB)
  Receive Date: 20180720
  Receipt Date: 20180720
  Transmission Date: 20190204
  Serious: No
  Sender: FDA-Public Use
  Company Number: GB-B. BRAUN MEDICAL INC.-2052458

PATIENT
  Age: 74 Year
  Sex: Male
  Weight: 83 kg

DRUGS (4)
  1. METRONIDAZOLE INJECTION USP (5 MG/ML) IN PAB? PLASTIC CONTAINER (NDA 0 [Suspect]
     Active Substance: METRONIDAZOLE
     Indication: INFECTION PROTOZOAL
  2. LOSARTAN. [Concomitant]
     Active Substance: LOSARTAN
  3. METRONIDAZOLE. [Suspect]
     Active Substance: METRONIDAZOLE
     Route: 048
     Dates: start: 20180316
  4. ALLOPURINOL. [Concomitant]
     Active Substance: ALLOPURINOL

REACTIONS (4)
  - Dizziness [Recovered/Resolved]
  - Chromaturia [Unknown]
  - Dysgeusia [Not Recovered/Not Resolved]
  - Headache [Recovered/Resolved]
